FAERS Safety Report 9720556 (Version 2)
Quarter: 2014Q1

REPORT INFORMATION
  Report Type: Spontaneous
  Country: DE (occurrence: DE)
  Receive Date: 20131129
  Receipt Date: 20140127
  Transmission Date: 20141002
  Serious: Yes (Hospitalization, Other)
  Sender: FDA-Public Use
  Company Number: DE-AMGEN-DEUSP2013084409

PATIENT
  Age: 59 Year
  Sex: Male
  Weight: 102 kg

DRUGS (1)
  1. ENBREL [Suspect]
     Indication: PSORIATIC ARTHROPATHY
     Dosage: 50 MG, WEEKLY
     Route: 058
     Dates: start: 201108, end: 201311

REACTIONS (2)
  - Central nervous system lesion [Not Recovered/Not Resolved]
  - Eye movement disorder [Not Recovered/Not Resolved]
